FAERS Safety Report 24747407 (Version 1)
Quarter: 2024Q4

REPORT INFORMATION
  Report Type: Spontaneous
  Country: US (occurrence: None)
  Receive Date: 20241217
  Receipt Date: 20241217
  Transmission Date: 20250115
  Serious: Yes (Other)
  Sender: Public
  Company Number: None

PATIENT
  Age: 68 Year
  Sex: Female

DRUGS (1)
  1. AMBRISENTAN [Suspect]
     Active Substance: AMBRISENTAN
     Indication: Pulmonary arterial hypertension
     Dosage: 5MG QD ORAL?
     Route: 048
     Dates: start: 20241120, end: 20241205

REACTIONS (5)
  - Pruritus [None]
  - Joint swelling [None]
  - Oedema [None]
  - Malaise [None]
  - Dyspnoea exertional [None]

NARRATIVE: CASE EVENT DATE: 20241126
